FAERS Safety Report 5016756-3 (Version None)
Quarter: 2006Q2

REPORT INFORMATION
  Report Type: 
  Country: None (occurrence: None)
  Receive Date: 20060602
  Receipt Date: 20060210
  Transmission Date: 20061013
  Serious: Yes (Hospitalization)
  Sender: FDA-Public Use
  Company Number: IT-MERCK-0602ITA00010

PATIENT
  Age: 78 Year
  Sex: Male

DRUGS (6)
  1. HYZAAR [Suspect]
     Indication: HYPERTENSION
     Route: 048
     Dates: start: 20051112, end: 20051112
  2. HYZAAR [Suspect]
     Route: 048
     Dates: start: 20051126, end: 20051126
  3. COVERSYL [Suspect]
     Route: 048
     Dates: start: 20031201
  4. LANITOP [Concomitant]
     Route: 065
     Dates: start: 20031001
  5. ATORVASTATIN CALCIUM [Concomitant]
     Route: 065
     Dates: start: 20050301
  6. LASIX [Concomitant]
     Route: 048
     Dates: start: 20031101

REACTIONS (6)
  - CHILLS [None]
  - DIARRHOEA [None]
  - PYREXIA [None]
  - RENAL FAILURE CHRONIC [None]
  - SYNCOPE [None]
  - VOMITING [None]
